FAERS Safety Report 9220451 (Version 1)
Quarter: 2013Q2

REPORT INFORMATION
  Report Type: Spontaneous
  Country: US (occurrence: US)
  Receive Date: 20130409
  Receipt Date: 20130409
  Transmission Date: 20140414
  Serious: Yes (Other)
  Sender: FDA-Public Use
  Company Number: US-ASTRAZENECA-2013SE21046

PATIENT
  Age: 960 Month
  Sex: Female
  Weight: 41.3 kg

DRUGS (3)
  1. CRESTOR [Suspect]
     Route: 048
  2. METOPROLOL SUCCINATE [Suspect]
     Dosage: 25 MG DAILY, MANUFACTURER UNKNOWN
     Route: 048
     Dates: start: 20130314
  3. ASPIRIN [Concomitant]
     Indication: MYOCARDIAL INFARCTION
     Dosage: 1/4 FULL ASPIRIN DAILY
     Route: 048
     Dates: start: 201207

REACTIONS (5)
  - Myocardial infarction [Unknown]
  - Weight decreased [Unknown]
  - Pulmonary congestion [Unknown]
  - Body height decreased [Unknown]
  - Amnesia [Unknown]
